FAERS Safety Report 6189829-X (Version None)
Quarter: 2009Q2

REPORT INFORMATION
  Report Type: 
  Country: None (occurrence: None)
  Receive Date: 20090514
  Receipt Date: 20090505
  Transmission Date: 20091009
  Serious: Yes (Other)
  Sender: FDA-Public Use
  Company Number: US-BAYER-200916809NA

PATIENT
  Age: 67 Year
  Sex: Male

DRUGS (2)
  1. AVELOX [Suspect]
     Indication: INFLUENZA
     Dates: start: 20090317
  2. TAMIFLU [Suspect]
     Indication: INFLUENZA
     Dates: start: 20090317

REACTIONS (13)
  - ANAPHYLACTIC REACTION [None]
  - ASTHENIA [None]
  - BURNING SENSATION [None]
  - DIARRHOEA [None]
  - DYSARTHRIA [None]
  - DYSPNOEA [None]
  - GENERALISED ERYTHEMA [None]
  - HYPERHIDROSIS [None]
  - PERINEAL PAIN [None]
  - PRURITUS [None]
  - PRURITUS GENITAL [None]
  - THINKING ABNORMAL [None]
  - WHEEZING [None]
